FAERS Safety Report 16305979 (Version 1)
Quarter: 2019Q2

REPORT INFORMATION
  Report Type: Spontaneous
  Country: CH (occurrence: CH)
  Receive Date: 20190513
  Receipt Date: 20190513
  Transmission Date: 20190711
  Serious: Yes (Hospitalization, Disabling, Other)
  Sender: FDA-Public Use
  Company Number: CH-TEVA-2019-CH-1048204

PATIENT
  Age: 47 Year
  Sex: Male
  Weight: 70 kg

DRUGS (4)
  1. BACTRIM [Concomitant]
     Active Substance: SULFAMETHOXAZOLE\TRIMETHOPRIM
     Indication: PROPHYLAXIS
     Dosage: 800/160 MG, ONCE DAILY (1-0-0-0)
     Route: 065
  2. GAZYVARO [Suspect]
     Active Substance: OBINUTUZUMAB
     Indication: B-CELL LYMPHOMA
     Dosage: UNK UNK, CYCLIC (5 CYCLES)
     Route: 041
     Dates: start: 20171228, end: 20180426
  3. RITUXIMAB. [Concomitant]
     Active Substance: RITUXIMAB
     Indication: BONE MARROW INFILTRATION
     Route: 065
     Dates: start: 201712
  4. RIBOMUSTIN [Suspect]
     Active Substance: BENDAMUSTINE HYDROCHLORIDE
     Indication: PRODUCT USED FOR UNKNOWN INDICATION
     Dosage: UNK UNK, CYCLIC (5 CYCLES)
     Route: 041
     Dates: start: 20171228, end: 20180426

REACTIONS (4)
  - Myelitis [Recovered/Resolved]
  - Neutropenia [Unknown]
  - Lymphopenia [Unknown]
  - Ataxia [Unknown]

NARRATIVE: CASE EVENT DATE: 201806
